FAERS Safety Report 7013293-1 (Version None)
Quarter: 2010Q3

REPORT INFORMATION
  Report Type: 
  Country: None (occurrence: None)
  Receive Date: 20100924
  Receipt Date: 20100922
  Transmission Date: 20110219
  Serious: Yes (Death, Other)
  Sender: FDA-Public Use
  Company Number: PHHY2010JP63190

PATIENT
  Age: 46 Year
  Sex: Male

DRUGS (1)
  1. GLEEVEC [Suspect]
     Indication: CHRONIC MYELOID LEUKAEMIA
     Route: 048

REACTIONS (5)
  - DECREASED APPETITE [None]
  - GASTRIC CANCER [None]
  - METASTASES TO LIVER [None]
  - METASTASES TO PERITONEUM [None]
  - NEOPLASM MALIGNANT [None]
